FAERS Safety Report 8611315 (Version 2)
Quarter: 2013Q2

REPORT INFORMATION
  Report Type: Report from Study
  Country: MX (occurrence: MX)
  Receive Date: 20120612
  Receipt Date: 20130425
  Transmission Date: 20140414
  Serious: Yes (Death)
  Sender: FDA-Public Use
  Company Number: PHHY2012MX050021

PATIENT
  Age: 64 Year
  Sex: Male

DRUGS (2)
  1. EXFORGE HCT [Suspect]
     Indication: HYPERTENSION
     Dosage: 1 DF (320MG VALS/10 MG AMLO/25 MG HYDR) BID; ONE IN THE MORNING AND ONE IN THE NIGHT
     Dates: start: 201204
  2. FUROSEMIDE [Concomitant]
     Indication: RENAL FAILURE

REACTIONS (2)
  - Renal failure [Fatal]
  - Hypertension [Fatal]
